FAERS Safety Report 11895643 (Version 1)
Quarter: 2016Q1

REPORT INFORMATION
  Report Type: Spontaneous
  Country: AU (occurrence: AU)
  Receive Date: 20160107
  Receipt Date: 20160107
  Transmission Date: 20160526
  Serious: Yes (Other)
  Sender: FDA-Public Use
  Company Number: PHHY2015AU172446

PATIENT
  Age: 10 Year
  Sex: Female

DRUGS (2)
  1. TEMOZOLOMIDE. [Suspect]
     Active Substance: TEMOZOLOMIDE
     Indication: METASTATIC GLIOMA
     Route: 065
  2. CARBOPLATIN. [Suspect]
     Active Substance: CARBOPLATIN
     Indication: METASTATIC GLIOMA
     Route: 065

REACTIONS (5)
  - Neoplasm [Unknown]
  - Urinary incontinence [Unknown]
  - Disease progression [Unknown]
  - Headache [Unknown]
  - Metastasis [Unknown]
